FAERS Safety Report 18248936 (Version 1)
Quarter: 2020Q3

REPORT INFORMATION
  Report Type: Spontaneous
  Country: US (occurrence: US)
  Receive Date: 20200909
  Receipt Date: 20200909
  Transmission Date: 20201103
  Serious: No
  Sender: FDA-Public Use
  Company Number: US-PERRIGO-20US011152

PATIENT
  Age: 47 Year
  Sex: Male
  Weight: 83.45 kg

DRUGS (4)
  1. ALBUTEROL SULFATE. [Suspect]
     Active Substance: ALBUTEROL SULFATE
     Indication: ASTHMA
     Dosage: 90 MCG, TID, PRN
     Route: 055
     Dates: start: 2020, end: 202007
  2. ALBUTEROL SULFATE. [Suspect]
     Active Substance: ALBUTEROL SULFATE
     Dosage: UNKNOWN, PRN
     Route: 055
     Dates: start: 202007, end: 20200729
  3. ALBUTEROL SULFATE. [Suspect]
     Active Substance: ALBUTEROL SULFATE
     Dosage: 90 MCG, SINGLE
     Route: 055
     Dates: start: 20200731, end: 20200731
  4. ANTI?ASTHMATICS [Concomitant]
     Active Substance: UNSPECIFIED INGREDIENT
     Indication: ASTHMA
     Dosage: UNK
     Route: 055

REACTIONS (4)
  - Asthma [Recovered/Resolved]
  - Device delivery system issue [Recovered/Resolved]
  - Drug ineffective [Unknown]
  - Underdose [Recovered/Resolved]

NARRATIVE: CASE EVENT DATE: 202007
